FAERS Safety Report 6287785-7 (Version None)
Quarter: 2009Q3

REPORT INFORMATION
  Report Type: 
  Country: None (occurrence: None)
  Receive Date: 20090729
  Receipt Date: 20071003
  Transmission Date: 20100115
  Serious: Yes (Disabling, Other)
  Sender: FDA-Public Use
  Company Number: US-ASTRAZENECA-2006UW22890

PATIENT
  Age: 42 Year
  Sex: Female
  Weight: 87.6 kg

DRUGS (17)
  1. SEROQUEL [Suspect]
     Indication: DEPRESSION
     Dosage: 100 - 200 MG
     Route: 048
     Dates: start: 20000101, end: 20051001
  2. SEROQUEL [Suspect]
     Indication: SLEEP DISORDER
     Dosage: 100 - 200 MG
     Route: 048
     Dates: start: 20000101, end: 20051001
  3. SEROQUEL [Suspect]
     Dosage: 50 MG-200 MG
     Route: 048
     Dates: start: 20050324
  4. SEROQUEL [Suspect]
     Dosage: 50 MG-200 MG
     Route: 048
     Dates: start: 20050324
  5. RISPERDAL [Concomitant]
  6. ZYPREXA [Concomitant]
     Dates: start: 20060301
  7. HUMULIN R [Concomitant]
     Dosage: 70/30
     Dates: start: 20021101
  8. GEODON [Concomitant]
     Dosage: 40 MG-80 MG
     Dates: start: 20021004
  9. TOPAMAX [Concomitant]
     Dates: start: 20021004
  10. BUSPIRONE HCL [Concomitant]
     Dates: start: 20021004
  11. HYDROXYZINE [Concomitant]
     Dosage: 25 MG-50 MG
     Dates: start: 20021004
  12. NEURONTIN [Concomitant]
     Dates: start: 20021004
  13. PROMETHAZINE [Concomitant]
     Dates: start: 20030228
  14. HYDROCHLOROTHIAZIDE [Concomitant]
     Dates: start: 20040202
  15. ALLEGRA [Concomitant]
     Dates: start: 20040129
  16. ZOLOFT [Concomitant]
     Dosage: 50 MG-100 MG
     Dates: start: 20040630
  17. SINGULAIR [Concomitant]
     Dates: start: 20040624

REACTIONS (10)
  - ACQUIRED IMMUNODEFICIENCY SYNDROME [None]
  - DIABETES MELLITUS [None]
  - HEPATIC CIRRHOSIS [None]
  - HEPATITIS [None]
  - HEPATITIS A [None]
  - HEPATITIS B [None]
  - HEPATITIS C [None]
  - HIV ANTIGEN POSITIVE [None]
  - NEUROPATHY PERIPHERAL [None]
  - TYPE 1 DIABETES MELLITUS [None]
